FAERS Safety Report 17018144 (Version 2)
Quarter: 2019Q4

REPORT INFORMATION
  Report Type: Report from Study
  Country: BR (occurrence: BR)
  Receive Date: 20191111
  Receipt Date: 20191112
  Transmission Date: 20200122
  Serious: Yes (Hospitalization, Other)
  Sender: FDA-Public Use
  Company Number: BR-BIOGEN-2010BI002888

PATIENT
  Sex: Female

DRUGS (17)
  1. AVONEX PEN [Suspect]
     Active Substance: INTERFERON BETA-1A
     Indication: MULTIPLE SCLEROSIS
     Route: 030
     Dates: start: 2005, end: 201210
  2. AVONEX PEN [Suspect]
     Active Substance: INTERFERON BETA-1A
     Route: 030
     Dates: start: 20181001
  3. RANITIDINE. [Concomitant]
     Active Substance: RANITIDINE
     Indication: GASTRIC DISORDER
     Route: 048
     Dates: start: 2001
  4. SIMVASTATIN. [Concomitant]
     Active Substance: SIMVASTATIN
     Indication: PRODUCT USED FOR UNKNOWN INDICATION
     Route: 065
  5. LONIUM (OTILONIUM BROMIDE) [Concomitant]
     Indication: PRODUCT USED FOR UNKNOWN INDICATION
     Route: 065
  6. AVONEX PEN [Suspect]
     Active Substance: INTERFERON BETA-1A
     Route: 030
     Dates: start: 20121105, end: 201604
  7. AVONEX [Suspect]
     Active Substance: INTERFERON BETA-1A
     Indication: MULTIPLE SCLEROSIS
     Route: 030
     Dates: start: 200205, end: 2005
  8. OMEPRAZOLE. [Concomitant]
     Active Substance: OMEPRAZOLE
     Indication: PRODUCT USED FOR UNKNOWN INDICATION
     Route: 065
  9. MAGNESIUM ASPARTATE [Concomitant]
     Active Substance: MAGNESIUM ASPARTATE
     Indication: PRODUCT USED FOR UNKNOWN INDICATION
     Route: 065
  10. AVONEX PEN [Suspect]
     Active Substance: INTERFERON BETA-1A
     Route: 030
     Dates: start: 201210
  11. AVONEX [Suspect]
     Active Substance: INTERFERON BETA-1A
  12. OSCAL D (CALCIUM + CHOLECALCIFEROL) [Concomitant]
     Indication: PRODUCT USED FOR UNKNOWN INDICATION
     Route: 065
  13. AVONEX [Suspect]
     Active Substance: INTERFERON BETA-1A
  14. BLACKBERRY TINCTURE [Concomitant]
     Indication: PRODUCT USED FOR UNKNOWN INDICATION
     Route: 065
  15. PROLIA 9 (DENOSUMAB) [Concomitant]
     Indication: PRODUCT USED FOR UNKNOWN INDICATION
     Route: 065
  16. AVONEX [Suspect]
     Active Substance: INTERFERON BETA-1A
  17. FLUOXETINE [Concomitant]
     Active Substance: FLUOXETINE HYDROCHLORIDE
     Indication: PRODUCT USED FOR UNKNOWN INDICATION
     Route: 065

REACTIONS (14)
  - Uterine leiomyoma [Recovered/Resolved]
  - Pain [Recovered/Resolved]
  - Chills [Recovered/Resolved]
  - Headache [Not Recovered/Not Resolved]
  - Pyrexia [Recovered/Resolved]
  - Injection site pain [Not Recovered/Not Resolved]
  - Oestrogen receptor positive breast cancer [Recovered/Resolved]
  - Benign neoplasm of bladder [Recovered/Resolved]
  - Fatigue [Recovered/Resolved]
  - Urinary incontinence [Recovered/Resolved]
  - Breast mass [Recovered/Resolved]
  - Nausea [Unknown]
  - Ovarian fibroma [Unknown]
  - Gait inability [Unknown]

NARRATIVE: CASE EVENT DATE: 2005
